FAERS Safety Report 6206688-7 (Version None)
Quarter: 2009Q2

REPORT INFORMATION
  Report Type: 
  Country: None (occurrence: None)
  Receive Date: 20090528
  Receipt Date: 20090521
  Transmission Date: 20091009
  Serious: Yes (Other)
  Sender: FDA-Public Use
  Company Number: GB-WYE-G03723209

PATIENT
  Sex: Female

DRUGS (2)
  1. EFFEXOR XR [Suspect]
     Route: 048
     Dates: start: 20081221
  2. MIRTAZAPINE [Concomitant]
     Dosage: UNKNOWN

REACTIONS (2)
  - HAEMORRHAGIC DISORDER [None]
  - INTERNATIONAL NORMALISED RATIO INCREASED [None]
